FAERS Safety Report 20037888 (Version 3)
Quarter: 2021Q4

REPORT INFORMATION
  Report Type: Report from Study
  Country: US (occurrence: US)
  Receive Date: 20211105
  Receipt Date: 20211211
  Transmission Date: 20220304
  Serious: Yes (Other)
  Sender: FDA-Public Use
  Company Number: US-NOVARTISPH-NVSC2021US250471

PATIENT
  Sex: Female

DRUGS (1)
  1. ENTRESTO [Suspect]
     Active Substance: SACUBITRIL\VALSARTAN
     Indication: Cardiac failure congestive
     Dosage: 50 MG, BID (24/26 MG)
     Route: 048

REACTIONS (8)
  - Kidney infection [Unknown]
  - Oropharyngeal pain [Unknown]
  - Catarrh [Unknown]
  - Joint swelling [Unknown]
  - Abdominal distension [Unknown]
  - Irritable bowel syndrome [Unknown]
  - Dyspnoea [Not Recovered/Not Resolved]
  - Fatigue [Unknown]
